FAERS Safety Report 24567151 (Version 3)
Quarter: 2025Q1

REPORT INFORMATION
  Report Type: Spontaneous
  Country: AU (occurrence: AU)
  Receive Date: 20241030
  Receipt Date: 20250108
  Transmission Date: 20250408
  Serious: Yes (Disabling, Other)
  Sender: SANDOZ
  Company Number: AU-SANDOZ-SDZ2024AU090195

PATIENT
  Sex: Male
  Weight: 99 kg

DRUGS (2)
  1. OLANZAPINE [Suspect]
     Active Substance: OLANZAPINE
     Indication: Insomnia
     Dosage: 10 MG, EVERY EVENING
     Route: 048
  2. OLANZAPINE [Suspect]
     Active Substance: OLANZAPINE
     Indication: Ill-defined disorder

REACTIONS (6)
  - Psychotic symptom [Not Recovered/Not Resolved]
  - Scab [Not Recovered/Not Resolved]
  - Urticaria [Not Recovered/Not Resolved]
  - Drug dependence [Unknown]
  - Actinic keratosis [Unknown]
  - Product use in unapproved indication [Unknown]
